FAERS Safety Report 7909510-3 (Version None)
Quarter: 2011Q4

REPORT INFORMATION
  Report Type: 
  Country: None (occurrence: None)
  Receive Date: 20111111
  Receipt Date: 20111104
  Transmission Date: 20120403
  Serious: Yes (Other)
  Sender: FDA-Public Use
  Company Number: US-US-EMD SERONO, INC.-430013M05USA

PATIENT
  Sex: Male

DRUGS (4)
  1. REBIF [Concomitant]
     Indication: MULTIPLE SCLEROSIS
     Route: 065
     Dates: start: 20020101, end: 20030101
  2. NOVANTRONE [Suspect]
     Indication: MULTIPLE SCLEROSIS
     Route: 042
     Dates: start: 20031201, end: 20041201
  3. ANZEMET [Concomitant]
     Route: 065
  4. REBIF [Concomitant]
     Route: 065
     Dates: start: 20050513, end: 20050520

REACTIONS (1)
  - ACUTE PROMYELOCYTIC LEUKAEMIA [None]
